FAERS Safety Report 5332473-4 (Version None)
Quarter: 2007Q2

REPORT INFORMATION
  Report Type: 
  Country: None (occurrence: None)
  Receive Date: 20070523
  Receipt Date: 20070523
  Transmission Date: 20071010
  Serious: Yes (Other)
  Sender: FDA-Public Use
  Company Number: A0652253A

PATIENT
  Age: 52 Year
  Sex: Female

DRUGS (2)
  1. TUMS [Suspect]
     Indication: PRURITUS
     Route: 048
     Dates: start: 20061202, end: 20061202
  2. BENADRYL [Suspect]
     Indication: PRURITUS
     Route: 048
     Dates: start: 20061202, end: 20061202

REACTIONS (2)
  - CHOKING [None]
  - HAEMORRHAGE [None]
